FAERS Safety Report 22535869 (Version 1)
Quarter: 2023Q2

REPORT INFORMATION
  Report Type: Spontaneous
  Country: CN (occurrence: CN)
  Receive Date: 20230608
  Receipt Date: 20230608
  Transmission Date: 20230722
  Serious: Yes (Other)
  Sender: FDA-Public Use
  Company Number: CN-SA-SAC20230607000276

PATIENT
  Age: 87 Year
  Sex: Male
  Weight: 54.5 kg

DRUGS (1)
  1. ENOXAPARIN SODIUM [Suspect]
     Active Substance: ENOXAPARIN SODIUM
     Indication: Anticoagulant therapy
     Dosage: 200 IU, QD
     Route: 058
     Dates: start: 20230427, end: 20230506

REACTIONS (2)
  - Nephrogenic anaemia [Recovering/Resolving]
  - Gastrointestinal haemorrhage [Recovering/Resolving]

NARRATIVE: CASE EVENT DATE: 20230506
